FAERS Safety Report 16689262 (Version 1)
Quarter: 2019Q3

REPORT INFORMATION
  Report Type: Spontaneous
  Country: CN (occurrence: CN)
  Receive Date: 20190809
  Receipt Date: 20190809
  Transmission Date: 20191004
  Serious: Yes (Other)
  Sender: FDA-Public Use
  Company Number: CN-ASTRAZENECA-2019SF08145

PATIENT
  Age: 46 Year
  Sex: Female
  Weight: 61.5 kg

DRUGS (1)
  1. IRESSA [Suspect]
     Active Substance: GEFITINIB
     Indication: NON-SMALL CELL LUNG CANCER
     Route: 048
     Dates: start: 201708, end: 201902

REACTIONS (14)
  - Metastases to bone [Unknown]
  - Pleuritic pain [Unknown]
  - Rash [Unknown]
  - Drug resistance [Unknown]
  - Metastases to ovary [Unknown]
  - Nodule [Unknown]
  - Nasopharyngitis [Unknown]
  - Dysphagia [Unknown]
  - Pyrexia [Unknown]
  - Pleural thickening [Unknown]
  - Respiratory failure [Unknown]
  - Nasal herpes [Unknown]
  - Diarrhoea [Unknown]
  - Inappropriate schedule of product administration [Unknown]
